FAERS Safety Report 7150648-9 (Version None)
Quarter: 2010Q4

REPORT INFORMATION
  Report Type: 
  Country: None (occurrence: None)
  Receive Date: 20101210
  Receipt Date: 20101201
  Transmission Date: 20110411
  Serious: Yes (Death, Other)
  Sender: FDA-Public Use
  Company Number: JP-GENZYME-THYM-1001889

PATIENT
  Sex: Male
  Weight: 56 kg

DRUGS (18)
  1. THYMOGLOBULIN [Suspect]
     Indication: APLASTIC ANAEMIA
     Dosage: 200 MG, QD
     Route: 042
     Dates: start: 20100809, end: 20100813
  2. ITRACONAZOLE [Concomitant]
     Indication: ANTIFUNGAL PROPHYLAXIS
     Dosage: 20 ML, QD
     Route: 048
     Dates: start: 20100804, end: 20100910
  3. SULFAMETHOPRIM [Concomitant]
     Indication: ANTIFUNGAL PROPHYLAXIS
     Dosage: 480 MG, UNK
     Route: 048
     Dates: start: 20100804, end: 20101027
  4. CYCLOSPORINE [Concomitant]
     Indication: APLASTIC ANAEMIA
     Dosage: 300 MG, UNK
     Route: 048
     Dates: start: 20100809, end: 20101030
  5. METHYLPREDNISOLONE [Concomitant]
     Indication: PROPHYLAXIS
     Dosage: 125 MG, UNK
     Route: 042
     Dates: start: 20100809, end: 20100813
  6. METHYLPREDNISOLONE [Concomitant]
     Dosage: 80 MG, UNK
     Route: 042
     Dates: start: 20100814, end: 20100816
  7. METHYLPREDNISOLONE [Concomitant]
     Dosage: 40 MG, UNK
     Route: 042
     Dates: start: 20100817, end: 20100819
  8. PREDNISOLONE [Concomitant]
     Indication: PROPHYLAXIS
     Dosage: 20 MG, UNK
     Route: 048
     Dates: start: 20100820, end: 20100826
  9. PREDNISOLONE [Concomitant]
     Dosage: 15 MG, UNK
     Route: 048
     Dates: start: 20100827, end: 20100902
  10. PREDNISOLONE [Concomitant]
     Dosage: 10 MG, UNK
     Route: 048
     Dates: start: 20100903, end: 20100909
  11. PREDNISOLONE [Concomitant]
     Dosage: 8 MG, UNK
     Route: 048
     Dates: start: 20100910, end: 20100916
  12. PREDNISOLONE [Concomitant]
     Dosage: 6 MG, UNK
     Route: 048
     Dates: start: 20100917, end: 20100923
  13. PREDNISOLONE [Concomitant]
     Dosage: 4 MG, UNK
     Route: 048
     Dates: start: 20100924, end: 20100930
  14. PREDNISOLONE [Concomitant]
     Dosage: 2 MG, UNK
     Route: 048
     Dates: start: 20101001, end: 20101007
  15. LENOGRASTIM [Concomitant]
     Indication: NEUTROPENIA
     Dosage: 250 MCG, UNK
     Route: 042
     Dates: start: 20100809, end: 20101030
  16. CANDESARTAN CILEXETIL [Concomitant]
     Indication: HYPERTENSION
     Dosage: 4 MG, UNK
     Route: 048
     Dates: end: 20101027
  17. PLATELETS [Concomitant]
     Indication: PRODUCT USED FOR UNKNOWN INDICATION
     Dosage: UNK
     Dates: start: 20100703, end: 20101030
  18. HUMAN RED BLOOD CELLS [Concomitant]
     Indication: PRODUCT USED FOR UNKNOWN INDICATION
     Dosage: UNK
     Dates: start: 20100730, end: 20101030

REACTIONS (2)
  - FEBRILE NEUTROPENIA [None]
  - PLATELET COUNT DECREASED [None]
